FAERS Safety Report 4440819-4 (Version None)
Quarter: 2004Q3

REPORT INFORMATION
  Report Type: 
  Country: None (occurrence: None)
  Receive Date: 20040903
  Receipt Date: 20040830
  Transmission Date: 20050211
  Serious: Yes (Other)
  Sender: FDA-Public Use
  Company Number: US-GLAXOSMITHKLINE-A0524365A

PATIENT
  Age: 67 Year
  Sex: Male

DRUGS (1)
  1. LAMICTAL [Suspect]
     Indication: BIPOLAR DISORDER
     Dosage: 100MG TWICE PER DAY
     Route: 048

REACTIONS (6)
  - HEADACHE [None]
  - IMMOBILE [None]
  - NAUSEA [None]
  - PAIN [None]
  - PRESCRIBED OVERDOSE [None]
  - VOMITING [None]
